FAERS Safety Report 9729753 (Version 2)
Quarter: 2015Q3

REPORT INFORMATION
  Report Type: Spontaneous
  Country: US (occurrence: US)
  Receive Date: 20131204
  Receipt Date: 20150804
  Transmission Date: 20151125
  Serious: No
  Sender: FDA-Public Use
  Company Number: US-GILEAD-2009-0021980

PATIENT
  Age: 79 Year
  Sex: Male
  Weight: 93.44 kg

DRUGS (14)
  1. VITAMIN D [Concomitant]
     Active Substance: CHOLECALCIFEROL
  2. TESTOSTERONE GEL [Concomitant]
     Active Substance: TESTOSTERONE
  3. LAMICTAL [Concomitant]
     Active Substance: LAMOTRIGINE
  4. LETAIRIS [Suspect]
     Active Substance: AMBRISENTAN
     Indication: PULMONARY ARTERIAL HYPERTENSION
     Route: 048
     Dates: start: 20090421
  5. ZENAPAX [Concomitant]
     Active Substance: DACLIZUMAB
  6. PRIMIDONE. [Concomitant]
     Active Substance: PRIMIDONE
  7. FLORINEF ACETATE [Concomitant]
     Active Substance: FLUDROCORTISONE ACETATE
  8. SINGULAIR [Concomitant]
     Active Substance: MONTELUKAST SODIUM
  9. ASPIRIN. [Concomitant]
     Active Substance: ASPIRIN
  10. LEVOTHYROXINE. [Concomitant]
     Active Substance: LEVOTHYROXINE
  11. FISH OIL [Concomitant]
     Active Substance: FISH OIL
  12. ACTONEL [Concomitant]
     Active Substance: RISEDRONATE SODIUM
  13. ARICEPT [Concomitant]
     Active Substance: DONEPEZIL HYDROCHLORIDE
  14. RANITIDINE [Concomitant]
     Active Substance: RANITIDINE\RANITIDINE HYDROCHLORIDE

REACTIONS (1)
  - Hypotension [Unknown]
